FAERS Safety Report 4317553-4 (Version None)
Quarter: 2004Q1

REPORT INFORMATION
  Report Type: 
  Country: None (occurrence: None)
  Receive Date: 20040312
  Receipt Date: 20040225
  Transmission Date: 20041129
  Serious: Yes (Hospitalization, Other)
  Sender: FDA-Public Use
  Company Number: USA-2003-0010853

PATIENT
  Age: 53 Year
  Sex: Female

DRUGS (25)
  1. OXYCONTIN [Suspect]
     Indication: PAIN
     Dosage: 40 MG, Q12H, ORAL;40 MG, TID; 60 MG Q8H
     Route: 048
     Dates: start: 20011211, end: 20020304
  2. OXYCONTIN [Suspect]
     Indication: PAIN
     Dosage: 40 MG, Q12H, ORAL;40 MG, TID; 60 MG Q8H
     Route: 048
     Dates: end: 20030901
  3. OXYCONTIN [Suspect]
     Indication: PAIN
     Dosage: 40 MG, Q12H, ORAL;40 MG, TID; 60 MG Q8H
     Route: 048
     Dates: start: 20020304
  4. VALIUM [Concomitant]
  5. ZANAFLEX [Concomitant]
  6. SEREVENT [Concomitant]
  7. ATROVENT [Concomitant]
  8. FLOVENT [Concomitant]
  9. COMBIVENT [Concomitant]
  10. ALBUTEROL [Concomitant]
  11. BENADRYL [Concomitant]
  12. MILK THISTLE [Concomitant]
  13. PIPERACILLIN SODIUM W/TAZOBACTAM SODIUM (PIPACILLIN SODIUM, TAZOBACTAM [Concomitant]
  14. VANCOMYCIN [Concomitant]
  15. POLYETHYLENE GLYCOL (MACROGOL) [Concomitant]
  16. FERROUS SULFATE TAB [Concomitant]
  17. TRENTAL [Concomitant]
  18. NIZATIDINE [Concomitant]
  19. DOCUSATE CALCIUM (DOCUSATE CALCIUM) [Concomitant]
  20. NYSTATIN [Concomitant]
  21. BISACODYL [Concomitant]
  22. MAALOX (MAGNSIUM HYDROXIDE, ALUMINIUM HYDROXIDE GEL) [Concomitant]
  23. ESTAZOLAM [Concomitant]
  24. PROMETHAZINE [Concomitant]
  25. AMBIEN [Concomitant]

REACTIONS (15)
  - ANXIETY [None]
  - ATELECTASIS [None]
  - CALCINOSIS [None]
  - CONSTIPATION [None]
  - DEPRESSION [None]
  - DRUG DEPENDENCE [None]
  - DRUG WITHDRAWAL SYNDROME [None]
  - HAEMANGIOMA OF LIVER [None]
  - INADEQUATE ANALGESIA [None]
  - PERIARTHRITIS [None]
  - PNEUMONIA [None]
  - POST PROCEDURAL COMPLICATION [None]
  - PULMONARY GRANULOMA [None]
  - RASH MACULAR [None]
  - WOUND INFECTION [None]
